FAERS Safety Report 25428951 (Version 2)
Quarter: 2025Q2

REPORT INFORMATION
  Report Type: Spontaneous
  Country: DE (occurrence: DE)
  Receive Date: 20250612
  Receipt Date: 20250620
  Transmission Date: 20250717
  Serious: Yes (Hospitalization, Other)
  Sender: INSUD PHARMA
  Company Number: DE-EXELTIS PHARMACEUTICAL HOLDING, S.L.-2506DE04246

PATIENT
  Age: 36 Year
  Sex: Female

DRUGS (4)
  1. DROSPIRENONE [Suspect]
     Active Substance: DROSPIRENONE
     Indication: Endometriosis
     Route: 065
     Dates: start: 202407
  2. DROSPIRENONE [Suspect]
     Active Substance: DROSPIRENONE
     Indication: Dysmenorrhoea
  3. DROSPIRENONE [Suspect]
     Active Substance: DROSPIRENONE
     Indication: Contraception
  4. POTASSIUM [Concomitant]
     Active Substance: POTASSIUM
     Indication: Product used for unknown indication

REACTIONS (4)
  - Atrioventricular block complete [Recovered/Resolved]
  - Blood potassium abnormal [Recovered/Resolved]
  - Product use in unapproved indication [Unknown]
  - Product use issue [Unknown]
